FAERS Safety Report 5774107-0 (Version None)
Quarter: 2008Q2

REPORT INFORMATION
  Report Type: 
  Country: None (occurrence: None)
  Receive Date: 20080616
  Receipt Date: 20080602
  Transmission Date: 20081010
  Serious: Yes (Hospitalization)
  Sender: FDA-Public Use
  Company Number: FR-PURDUE-GBR_2008_0004094

PATIENT
  Age: 71 Year
  Sex: Male

DRUGS (5)
  1. OXYCONTIN [Suspect]
     Indication: CANCER PAIN
     Dosage: 2 DF, UNK
     Route: 048
  2. MEDROL [Concomitant]
     Indication: NEOPLASM PROSTATE
     Dosage: 16 MG, BID
     Route: 048
  3. MONO-TILDIEM [Concomitant]
     Indication: DRUG USE FOR UNKNOWN INDICATION
     Dosage: 300 MG, DAILY
     Route: 048
  4. LASILIX [Concomitant]
     Indication: RENAL FAILURE
     Dosage: 500 MG, 4 DAY/WEEK
     Route: 048
  5. XANAX [Concomitant]
     Indication: ANXIETY
     Dosage: .25 MG, TID
     Route: 048

REACTIONS (4)
  - CONFUSIONAL STATE [None]
  - DISORIENTATION [None]
  - FALL [None]
  - MYDRIASIS [None]
